FAERS Safety Report 12609872 (Version 3)
Quarter: 2019Q3

REPORT INFORMATION
  Report Type: Spontaneous
  Country: US (occurrence: US)
  Receive Date: 20160801
  Receipt Date: 20190820
  Transmission Date: 20191004
  Serious: Yes (Other)
  Sender: FDA-Public Use
  Company Number: US-TEVA-681217ACC

PATIENT
  Sex: Female

DRUGS (1)
  1. PARAGARD T 380A [Suspect]
     Active Substance: COPPER
     Indication: CONTRACEPTION
     Dates: start: 20160304, end: 20170214

REACTIONS (6)
  - Pain [Recovered/Resolved]
  - Pregnancy on contraceptive [Unknown]
  - Maternal exposure during pregnancy [Unknown]
  - Dysmenorrhoea [Unknown]
  - Premature labour [Unknown]
  - Live birth [Unknown]

NARRATIVE: CASE EVENT DATE: 20170222
